FAERS Safety Report 9769312 (Version 1)
Quarter: 2013Q4

REPORT INFORMATION
  Report Type: Spontaneous
  Country: US (occurrence: None)
  Receive Date: 20131204
  Receipt Date: 20131204
  Transmission Date: 20140711
  Serious: Yes (Hospitalization)
  Sender: FDA-Public Use
  Company Number: KAMADA LTD MFR # 44666

PATIENT
  Age: 51 Year
  Sex: Female
  Weight: 74.39 kg

DRUGS (12)
  1. GLASSIA (ALPHA-PROTEINASE INHIBITOR (HUMAN)) KAMADA [Suspect]
     Indication: ALPHA-1 ANTI-TRYPSIN DEFICIENCY
     Dosage: 4500+/10%WEEKLY
     Route: 042
     Dates: start: 20130926
  2. ALPRAZOLAM [Concomitant]
  3. ASPIRIN [Concomitant]
  4. DALIRESP [Concomitant]
  5. ESTROGEL [Concomitant]
  6. MEDROL [Concomitant]
  7. SYMBICORT [Concomitant]
  8. TUDORZA [Concomitant]
  9. VENTOLIN [Concomitant]
  10. VERAPAMIL [Concomitant]
  11. VISTARIL [Concomitant]
  12. XOPENEX [Concomitant]

REACTIONS (8)
  - Chronic obstructive pulmonary disease [None]
  - Respiratory failure [None]
  - Tachycardia [None]
  - Anxiety [None]
  - Hypertension [None]
  - Emphysema [None]
  - Alpha-1 anti-trypsin deficiency [None]
  - Condition aggravated [None]
